FAERS Safety Report 9868006 (Version 2)
Quarter: 2014Q1

REPORT INFORMATION
  Report Type: Spontaneous
  Country: US (occurrence: US)
  Receive Date: 20140204
  Receipt Date: 20140327
  Transmission Date: 20141002
  Serious: No
  Sender: FDA-Public Use
  Company Number: US-009507513-1401USA011190

PATIENT
  Age: 27 Year
  Sex: Female
  Weight: 37.3 kg

DRUGS (2)
  1. NEXPLANON [Suspect]
     Dosage: 1 ROD
     Route: 059
     Dates: start: 20140122, end: 20140122
  2. NEXPLANON [Suspect]
     Dosage: 1 ROD
     Route: 059
     Dates: start: 20140122

REACTIONS (2)
  - Device difficult to use [Recovered/Resolved]
  - No adverse event [Unknown]
